FAERS Safety Report 15444492 (Version 1)
Quarter: 2018Q3

REPORT INFORMATION
  Report Type: Spontaneous
  Country: US (occurrence: US)
  Receive Date: 20180928
  Receipt Date: 20180928
  Transmission Date: 20181010
  Serious: No
  Sender: FDA-Public Use
  Company Number: US-SA-2018SA266225

PATIENT
  Age: 49 Year
  Sex: Female

DRUGS (1)
  1. SOLIQUA 100/33 [Suspect]
     Active Substance: INSULIN GLARGINE\LIXISENATIDE
     Indication: DIABETES MELLITUS
     Dosage: 30?35 UNITS,SINCE 6 MONTHS AGO
     Route: 065

REACTIONS (2)
  - Device leakage [Unknown]
  - Blood glucose increased [Unknown]
